FAERS Safety Report 19002928 (Version 1)
Quarter: 2021Q1

REPORT INFORMATION
  Report Type: Spontaneous
  Country: US (occurrence: US)
  Receive Date: 20210311
  Receipt Date: 20210311
  Transmission Date: 20210420
  Serious: Yes (Life-Threatening, Other)
  Sender: FDA-Public Use
  Company Number: None

PATIENT
  Age: 66 Year
  Sex: Female
  Weight: 61.23 kg

DRUGS (8)
  1. QUETIAPINE ? AUROBINDO [Suspect]
     Active Substance: QUETIAPINE FUMARATE
     Indication: BIPOLAR DISORDER
     Dosage: ?          QUANTITY:50 MG MILLIGRAM(S);?
  2. METAMUCIL [Concomitant]
     Active Substance: PLANTAGO SEED
  3. LISINOPRIL. [Concomitant]
     Active Substance: LISINOPRIL
  4. GAS?X [Concomitant]
     Active Substance: DIMETHICONE
  5. TRILEPTAL [Concomitant]
     Active Substance: OXCARBAZEPINE
  6. CALCITRIOL. [Concomitant]
     Active Substance: CALCITRIOL
  7. FERROUS SULFATE. [Concomitant]
     Active Substance: FERROUS SULFATE
  8. PEPCID [Concomitant]
     Active Substance: FAMOTIDINE

REACTIONS (3)
  - Epistaxis [None]
  - Injury [None]
  - Fall [None]

NARRATIVE: CASE EVENT DATE: 20210210
